FAERS Safety Report 9947813 (Version 1)
Quarter: 2014Q1

REPORT INFORMATION
  Report Type: Spontaneous
  Country: US (occurrence: US)
  Receive Date: 20140303
  Receipt Date: 20140303
  Transmission Date: 20141002
  Serious: No
  Sender: FDA-Public Use
  Company Number: US-ABBVIE-13P-163-1056035-00

PATIENT
  Sex: Female

DRUGS (4)
  1. HUMIRA [Suspect]
     Indication: CROHN^S DISEASE
     Route: 058
     Dates: start: 20130209, end: 20130209
  2. HUMIRA [Suspect]
     Route: 058
     Dates: start: 20130223, end: 20130223
  3. TOPAMAX [Concomitant]
     Indication: MIGRAINE
  4. PROPRANOLOL [Concomitant]
     Indication: MIGRAINE

REACTIONS (1)
  - Migraine [Not Recovered/Not Resolved]
